FAERS Safety Report 10242092 (Version 2)
Quarter: 2015Q2

REPORT INFORMATION
  Report Type: Spontaneous
  Country: GB (occurrence: GB)
  Receive Date: 20140617
  Receipt Date: 20150501
  Transmission Date: 20150821
  Serious: Yes (Life-Threatening, Hospitalization)
  Sender: FDA-Public Use
  Company Number: GB-BRISTOL-MYERS SQUIBB COMPANY-20976478

PATIENT
  Age: 36 Year
  Sex: Male
  Weight: 75 kg

DRUGS (5)
  1. MEBEVERINE [Concomitant]
     Active Substance: MEBEVERINE
     Indication: PRODUCT USED FOR UNKNOWN INDICATION
     Route: 065
  2. ARIPIPRAZOLE. [Suspect]
     Active Substance: ARIPIPRAZOLE
     Indication: SCHIZOPHRENIA
     Dosage: 10 MG, QD
     Route: 048
     Dates: start: 20100918, end: 20140522
  3. PANTOPRAZOLE [Concomitant]
     Active Substance: PANTOPRAZOLE SODIUM
     Indication: EPIGASTRIC DISCOMFORT
     Dosage: 40 MG, QD
     Route: 048
     Dates: start: 20101018, end: 20140522
  4. CLOZAPINE. [Concomitant]
     Active Substance: CLOZAPINE
     Indication: SCHIZOPHRENIA
     Dosage: 325 MG, QD
     Route: 048
     Dates: start: 20110401, end: 20140522
  5. MIRTAZAPINE. [Concomitant]
     Active Substance: MIRTAZAPINE
     Indication: SCHIZOPHRENIA
     Dosage: 45 MG, QD
     Route: 048
     Dates: start: 2000, end: 20140523

REACTIONS (2)
  - Abdominal pain [Recovered/Resolved]
  - Acute hepatic failure [Recovered/Resolved]

NARRATIVE: CASE EVENT DATE: 20140522
